FAERS Safety Report 15020491 (Version 1)
Quarter: 2018Q2

REPORT INFORMATION
  Report Type: Spontaneous
  Country: US (occurrence: US)
  Receive Date: 20180601
  Receipt Date: 20180601
  Transmission Date: 20180711
  Serious: Yes (Other)
  Sender: FDA-Public Use
  Company Number: None

PATIENT
  Age: 38 Year
  Sex: Female
  Weight: 64.8 kg

DRUGS (1)
  1. CETIRIZINE [Suspect]
     Active Substance: CETIRIZINE HYDROCHLORIDE
     Indication: HYPERSENSITIVITY
     Dosage: ?          OTHER STRENGTH:10 MG;QUANTITY:500 TABLET(S);?
     Route: 048
     Dates: end: 20180528

REACTIONS (4)
  - Drug withdrawal syndrome [None]
  - Pruritus [None]
  - Dermatillomania [None]
  - Drug ineffective [None]

NARRATIVE: CASE EVENT DATE: 20180531
